FAERS Safety Report 7308816-9 (Version None)
Quarter: 2011Q1

REPORT INFORMATION
  Report Type: 
  Country: None (occurrence: None)
  Receive Date: 20110223
  Receipt Date: 20110214
  Transmission Date: 20110831
  Serious: Yes (Hospitalization)
  Sender: FDA-Public Use
  Company Number: PHHY2011US11182

PATIENT
  Sex: Female

DRUGS (2)
  1. EXJADE [Suspect]
     Dosage: UNK
     Route: 048
     Dates: start: 20110211
  2. EXJADE [Suspect]
     Indication: MYELODYSPLASTIC SYNDROME
     Dosage: 1000 MG, DAILY
     Route: 048

REACTIONS (5)
  - PNEUMONIA [None]
  - PANCYTOPENIA [None]
  - PYREXIA [None]
  - NEUTROPENIA [None]
  - FUNGAL INFECTION [None]
